FAERS Safety Report 11883534 (Version 1)
Quarter: 2015Q4

REPORT INFORMATION
  Report Type: Report from Study
  Country: BR (occurrence: BR)
  Receive Date: 20151231
  Receipt Date: 20151231
  Transmission Date: 20160305
  Serious: Yes (Death)
  Sender: FDA-Public Use
  Company Number: PHHY2015BR170763

PATIENT
  Sex: Female
  Weight: 56.8 kg

DRUGS (1)
  1. EXJADE [Suspect]
     Active Substance: DEFERASIROX
     Indication: IRON OVERLOAD
     Dosage: 10 MG/KG, (1 DF OF 500 MG) QD
     Route: 048
     Dates: start: 201510

REACTIONS (3)
  - Cachexia [Unknown]
  - Acute lymphocytic leukaemia [Fatal]
  - Leukaemia recurrent [Fatal]
